FAERS Safety Report 20515948 (Version 1)
Quarter: 2022Q1

REPORT INFORMATION
  Report Type: Report from Study
  Country: AR (occurrence: AR)
  Receive Date: 20220225
  Receipt Date: 20220225
  Transmission Date: 20220424
  Serious: Yes (Hospitalization)
  Sender: FDA-Public Use
  Company Number: AR-NOVARTISPH-PHHY2018AR006821

PATIENT
  Age: 85 Year
  Sex: Male

DRUGS (7)
  1. ENTRESTO [Suspect]
     Active Substance: SACUBITRIL\VALSARTAN
     Indication: Cardiac failure
     Dosage: 0.25 DF, (SACUBITRIL 49 MG + VALSARTAN 51 MG) UNK
     Route: 065
  2. ENTRESTO [Suspect]
     Active Substance: SACUBITRIL\VALSARTAN
     Dosage: 0.5 DF, BID
     Route: 065
  3. ENTRESTO [Suspect]
     Active Substance: SACUBITRIL\VALSARTAN
     Dosage: 0.5 DF (SACUBITRIL 49 MG + VALSARTAN 51 MG), IN THE MORNING
     Route: 065
     Dates: start: 201710
  4. ENTRESTO [Suspect]
     Active Substance: SACUBITRIL\VALSARTAN
     Dosage: 0.5 DF, Q12H
     Route: 065
  5. ENTRESTO [Suspect]
     Active Substance: SACUBITRIL\VALSARTAN
     Dosage: UNK UNK, QD (2 OF 100 MG) 7 YEARS AGO APPROXIMATELY
     Route: 065
  6. ENTRESTO [Suspect]
     Active Substance: SACUBITRIL\VALSARTAN
     Dosage: UNK UNK, QD (2 OF 50 MG)
     Route: 065
  7. ENTRESTO [Suspect]
     Active Substance: SACUBITRIL\VALSARTAN
     Dosage: UNK UNK, BID ((HALF OF 50 MG) IN THE MORNING AND AT NIGHT 4 YEARS AGO APPROXIMATELY)
     Route: 065

REACTIONS (8)
  - Mobility decreased [Not Recovered/Not Resolved]
  - Fatigue [Unknown]
  - Blood pressure decreased [Recovered/Resolved]
  - Dizziness [Not Recovered/Not Resolved]
  - Coagulopathy [Unknown]
  - Malaise [Unknown]
  - Headache [Unknown]
  - Wrong technique in product usage process [Not Recovered/Not Resolved]

NARRATIVE: CASE EVENT DATE: 20180801
